FAERS Safety Report 9223814 (Version 1)
Quarter: 2013Q2

REPORT INFORMATION
  Report Type: Spontaneous
  Country: US (occurrence: US)
  Receive Date: 20130410
  Receipt Date: 20130410
  Transmission Date: 20140414
  Serious: Yes (Hospitalization)
  Sender: FDA-Public Use
  Company Number: US-009507513-1303USA003546

PATIENT
  Sex: Female

DRUGS (5)
  1. ALBUTEROL SULFATE [Suspect]
     Dosage: UNK
     Route: 055
     Dates: end: 2013
  2. XOPENEX [Concomitant]
  3. DULERA [Concomitant]
  4. OXYGEN [Concomitant]
  5. PANTOPRAZOLE [Concomitant]

REACTIONS (3)
  - Oedema mouth [Recovered/Resolved]
  - Tremor [Recovered/Resolved]
  - Hypersensitivity [Recovered/Resolved]
